FAERS Safety Report 5562304-9 (Version None)
Quarter: 2007Q4

REPORT INFORMATION
  Report Type: 
  Country: None (occurrence: None)
  Receive Date: 20071215
  Receipt Date: 20070912
  Transmission Date: 20080405
  Serious: No
  Sender: FDA-Public Use
  Company Number: US-AMGEN-US236156

PATIENT
  Sex: Female
  Weight: 139.4 kg

DRUGS (7)
  1. ENBREL [Suspect]
     Indication: RHEUMATOID ARTHRITIS
     Route: 058
     Dates: start: 20070301
  2. METHOTREXATE [Concomitant]
     Route: 065
  3. FOLIC ACID [Concomitant]
     Route: 065
  4. SYNTHROID [Concomitant]
     Route: 065
  5. CALCIUM [Concomitant]
     Route: 065
  6. NEXIUM [Concomitant]
     Route: 065
  7. PREVACID [Concomitant]
     Route: 065

REACTIONS (5)
  - COUGH [None]
  - ERYTHEMA [None]
  - OEDEMA PERIPHERAL [None]
  - RASH PRURITIC [None]
  - SINUS CONGESTION [None]
